FAERS Safety Report 12095687 (Version 1)
Quarter: 2016Q1

REPORT INFORMATION
  Report Type: Spontaneous
  Country: US (occurrence: US)
  Receive Date: 20160219
  Receipt Date: 20160219
  Transmission Date: 20160526
  Serious: No
  Sender: FDA-Public Use
  Company Number: US-ALLERGAN-1505360US

PATIENT
  Age: 40 Year
  Sex: Female

DRUGS (1)
  1. FABIOR [Suspect]
     Active Substance: TAZAROTENE
     Indication: ACNE
     Dosage: UNK UNK, QD
     Route: 061
     Dates: start: 20150302

REACTIONS (9)
  - Hyperaesthesia [Recovering/Resolving]
  - Rash macular [Recovering/Resolving]
  - Application site erythema [Recovering/Resolving]
  - Application site paraesthesia [Recovering/Resolving]
  - Hypersensitivity [Recovering/Resolving]
  - Skin ulcer [Recovering/Resolving]
  - Application site urticaria [Recovering/Resolving]
  - Application site exfoliation [Recovering/Resolving]
  - Application site pain [Recovering/Resolving]

NARRATIVE: CASE EVENT DATE: 20150303
